FAERS Safety Report 5124746-5 (Version None)
Quarter: 2006Q4

REPORT INFORMATION
  Report Type: 
  Country: None (occurrence: None)
  Receive Date: 20061011
  Receipt Date: 20061003
  Transmission Date: 20070319
  Serious: Yes (Hospitalization)
  Sender: FDA-Public Use
  Company Number: FR-AVENTIS-200613403FR

PATIENT
  Age: 34 Year
  Sex: Female

DRUGS (2)
  1. RODOGYL [Suspect]
     Indication: TOOTH ABSCESS
     Route: 048
     Dates: start: 20060522, end: 20060727
  2. SORIATANE [Suspect]
     Indication: PSORIASIS
     Route: 048
     Dates: start: 20060718, end: 20060726

REACTIONS (10)
  - AUTOIMMUNE DISORDER [None]
  - CHOLESTASIS [None]
  - DERMATITIS EXFOLIATIVE [None]
  - DRUG RASH WITH EOSINOPHILIA AND SYSTEMIC SYMPTOMS [None]
  - EJECTION FRACTION DECREASED [None]
  - KAWASAKI'S DISEASE [None]
  - MITRAL VALVE INCOMPETENCE [None]
  - MYOCARDITIS [None]
  - PYREXIA [None]
  - VIRAL INFECTION [None]
